FAERS Safety Report 23473573 (Version 2)
Quarter: 2024Q1

REPORT INFORMATION
  Report Type: Spontaneous
  Country: CZ (occurrence: CZ)
  Receive Date: 20240203
  Receipt Date: 20240320
  Transmission Date: 20240409
  Serious: Yes (Other)
  Sender: FDA-Public Use
  Company Number: CZ-TEVA-VS-3151438

PATIENT
  Age: 57 Year
  Sex: Female

DRUGS (2)
  1. PACLITAXEL [Suspect]
     Active Substance: PACLITAXEL
     Indication: Ovarian cancer
     Dosage: 8 CYCLES OF PACLITAXEL + CARBOPLATIN
     Route: 065
     Dates: start: 201904, end: 201910
  2. CARBOPLATIN [Suspect]
     Active Substance: CARBOPLATIN
     Indication: Ovarian cancer
     Dosage: 6-8 CYCLES OF PACLITAXEL + CARBOPLATIN
     Route: 065
     Dates: start: 201904, end: 201910

REACTIONS (3)
  - Neurotoxicity [Unknown]
  - Neuropathy peripheral [Unknown]
  - Haematotoxicity [Unknown]
